FAERS Safety Report 7207944-6 (Version None)
Quarter: 2010Q4

REPORT INFORMATION
  Report Type: 
  Country: None (occurrence: None)
  Receive Date: 20101222
  Receipt Date: 20101209
  Transmission Date: 20110411
  Serious: Yes (Death, Hospitalization)
  Sender: FDA-Public Use
  Company Number: UTC-002961

PATIENT
  Age: 56 Year
  Sex: Female

DRUGS (2)
  1. REMODULIN [Suspect]
     Indication: PULMONARY HYPERTENSION
     Dosage: 25.92 UG/KG (0.018 UG/KG, 1 IN 1 MIN), SUBCUTANEOUS
     Route: 058
     Dates: start: 20100721
  2. ADCIRCA [Concomitant]

REACTIONS (2)
  - MULTI-ORGAN FAILURE [None]
  - PERICARDITIS [None]
